FAERS Safety Report 7868913-6 (Version None)
Quarter: 2011Q4

REPORT INFORMATION
  Report Type: 
  Country: None (occurrence: None)
  Receive Date: 20111028
  Receipt Date: 20101222
  Transmission Date: 20120403
  Serious: No
  Sender: FDA-Public Use
  Company Number: US-AMGEN-USASP2010010815

PATIENT
  Sex: Female

DRUGS (1)
  1. ENBREL [Suspect]
     Indication: PSORIASIS
     Dosage: UNK
     Dates: start: 20100801, end: 20101101

REACTIONS (7)
  - MUSCULOSKELETAL PAIN [None]
  - LOCAL SWELLING [None]
  - ONYCHALGIA [None]
  - LOCALISED INFECTION [None]
  - HYPOAESTHESIA [None]
  - INJURY [None]
  - NAIL DISORDER [None]
